FAERS Safety Report 8812629 (Version 1)
Quarter: 2012Q4

REPORT INFORMATION
  Report Type: 
  Country: FR (occurrence: FR)
  Receive Date: 20120927
  Receipt Date: 20120927
  Transmission Date: 20130627
  Serious: Yes (Hospitalization)
  Sender: FDA-Public Use
  Company Number: PHHY2012FR082786

PATIENT
  Sex: Male

DRUGS (5)
  1. VOLTARENE [Suspect]
     Indication: OSTEOARTHRITIS
  2. COLCHIMAX [Concomitant]
     Indication: OSTEOARTHRITIS
     Dosage: 1 mg daily
  3. COLCHIMAX [Concomitant]
     Indication: GOUT
  4. ADENURIC [Concomitant]
     Dosage: 120 mg
  5. LAMALINE [Concomitant]

REACTIONS (6)
  - Colitis ulcerative [Recovered/Resolved]
  - Flank pain [Unknown]
  - Abdominal pain lower [Unknown]
  - Nausea [Unknown]
  - Large intestinal ulcer [Unknown]
  - Rectal ulcer [Unknown]
